FAERS Safety Report 7151663-1 (Version None)
Quarter: 2010Q4

REPORT INFORMATION
  Report Type: 
  Country: None (occurrence: None)
  Receive Date: 20101210
  Receipt Date: 20101207
  Transmission Date: 20110411
  Serious: Yes (Other)
  Sender: FDA-Public Use
  Company Number: JP-PFIZER INC-2010130203

PATIENT
  Age: 13 Year
  Sex: Male

DRUGS (2)
  1. GENOTROPIN TC [Suspect]
     Indication: DWARFISM
  2. GENOTROPIN TC [Suspect]
     Indication: GROWTH HORMONE DEFICIENCY

REACTIONS (1)
  - PROTEINURIA [None]
